FAERS Safety Report 25006245 (Version 1)
Quarter: 2025Q1

REPORT INFORMATION
  Report Type: Spontaneous
  Country: PT (occurrence: PT)
  Receive Date: 20250224
  Receipt Date: 20250224
  Transmission Date: 20250409
  Serious: Yes (Other)
  Sender: AMGEN
  Company Number: PT-AMGEN-PRTSP2025036112

PATIENT
  Sex: Male

DRUGS (5)
  1. ADALIMUMAB [Suspect]
     Active Substance: ADALIMUMAB
     Indication: Psoriasis
     Dosage: UNK, Q2WK (BIMONTHLY)
     Route: 058
  2. ALDOSTERONE [Concomitant]
     Active Substance: ALDOSTERONE
  3. METFORMIN [Concomitant]
     Active Substance: METFORMIN HYDROCHLORIDE
  4. EMPAGLIFLOZIN [Concomitant]
     Active Substance: EMPAGLIFLOZIN
  5. FEBUXOSTAT [Concomitant]
     Active Substance: FEBUXOSTAT

REACTIONS (6)
  - Acute kidney injury [Unknown]
  - Cutaneous leishmaniasis [Recovering/Resolving]
  - Hepatomegaly [Unknown]
  - Arthropod bite [Unknown]
  - Hepatic steatosis [Unknown]
  - Psoriasis [Unknown]
